FAERS Safety Report 12803796 (Version 6)
Quarter: 2017Q2

REPORT INFORMATION
  Report Type: Spontaneous
  Country: JP (occurrence: JP)
  Receive Date: 20161003
  Receipt Date: 20170531
  Transmission Date: 20170830
  Serious: Yes (Hospitalization)
  Sender: FDA-Public Use
  Company Number: PHJP2016JP027738

PATIENT
  Age: 50 Year
  Sex: Female
  Weight: 42.8 kg

DRUGS (2)
  1. LUNESTA [Concomitant]
     Active Substance: ESZOPICLONE
     Indication: INSOMNIA
     Dosage: 2 MG, QD
     Route: 048
     Dates: start: 20160913, end: 20161003
  2. GILENYA [Suspect]
     Active Substance: FINGOLIMOD HYDROCHLORIDE
     Indication: MULTIPLE SCLEROSIS RELAPSE PROPHYLAXIS
     Dosage: 0.5 MG, QD
     Route: 048
     Dates: start: 20130212, end: 20160816

REACTIONS (5)
  - Central nervous system lesion [Recovering/Resolving]
  - Aphasia [Recovering/Resolving]
  - Hemiplegia [Recovering/Resolving]
  - Multiple sclerosis relapse [Recovering/Resolving]
  - Hemiparesis [Recovering/Resolving]

NARRATIVE: CASE EVENT DATE: 20160815
